FAERS Safety Report 11428366 (Version 1)
Quarter: 2015Q3

REPORT INFORMATION
  Report Type: Spontaneous
  Country: US (occurrence: US)
  Receive Date: 20150828
  Receipt Date: 20150828
  Transmission Date: 20151125
  Serious: No
  Sender: FDA-Public Use
  Company Number: US-ROCHE-1247909

PATIENT
  Sex: Female

DRUGS (3)
  1. TELAPREVIR [Suspect]
     Active Substance: TELAPREVIR
     Indication: CHRONIC HEPATITIS C
     Route: 065
     Dates: start: 20130706
  2. RIBASPHERE RIBAPAK [Suspect]
     Active Substance: RIBAVIRIN
     Indication: CHRONIC HEPATITIS C
     Dosage: DAILY IN TWO DIVIDED DOSES
     Route: 048
     Dates: start: 20130706
  3. PEGASYS [Suspect]
     Active Substance: PEGINTERFERON ALFA-2A
     Indication: CHRONIC HEPATITIS C
     Route: 058
     Dates: start: 20130706, end: 20130706

REACTIONS (12)
  - Speech disorder [Unknown]
  - Tongue disorder [Unknown]
  - Influenza like illness [Unknown]
  - Chills [Unknown]
  - Swollen tongue [Unknown]
  - Injection site pruritus [Recovering/Resolving]
  - Anxiety [Unknown]
  - Asthma [Unknown]
  - Dyspnoea [Unknown]
  - Injection site erythema [Unknown]
  - Cough [Unknown]
  - Pruritus [Unknown]
